FAERS Safety Report 5696784-5 (Version None)
Quarter: 2008Q2

REPORT INFORMATION
  Report Type: 
  Country: None (occurrence: None)
  Receive Date: 20080407
  Receipt Date: 20080328
  Transmission Date: 20081010
  Serious: Yes (Hospitalization)
  Sender: FDA-Public Use
  Company Number: APP200800231

PATIENT
  Age: 49 Year
  Sex: Male
  Weight: 99 kg

DRUGS (3)
  1. HEPARIN SODIUM INJECTION [Suspect]
     Indication: ANGINA UNSTABLE
     Dosage: 5000 USP UNTIS, ONCE, INTRAVENOUS BOLUS
     Route: 040
     Dates: start: 20080211, end: 20080211
  2. HEPARIN [Suspect]
     Indication: ANGINA UNSTABLE
     Dosage: 5000 USP UNTIS, ONCE, INTRAVENOUS BOLUS
     Route: 042
     Dates: start: 20080211, end: 20080211
  3. HEPARIN [Suspect]

REACTIONS (3)
  - HYPOTENSION [None]
  - RASH [None]
  - TREMOR [None]
